FAERS Safety Report 5698736-8 (Version None)
Quarter: 2008Q2

REPORT INFORMATION
  Report Type: 
  Country: None (occurrence: None)
  Receive Date: 20080408
  Receipt Date: 20070509
  Transmission Date: 20081010
  Serious: No
  Sender: FDA-Public Use
  Company Number: US-BAYER-US-2007-017278

PATIENT
  Age: 59 Year
  Sex: Female
  Weight: 46 kg

DRUGS (4)
  1. CLIMARA [Suspect]
     Indication: MENOPAUSAL SYMPTOMS PROPHYLAXIS
     Route: 062
     Dates: start: 20010101
  2. BONIVA [Suspect]
     Route: 030
     Dates: start: 20070101
  3. VITAMINS [Concomitant]
  4. ACIPHEX [Concomitant]

REACTIONS (4)
  - BACK INJURY [None]
  - HOT FLUSH [None]
  - INFLUENZA LIKE ILLNESS [None]
  - SENSORY DISTURBANCE [None]
